FAERS Safety Report 8503670-1 (Version None)
Quarter: 2012Q3

REPORT INFORMATION
  Report Type: 
  Country: None (occurrence: None)
  Receive Date: 20120711
  Receipt Date: 20120626
  Transmission Date: 20120928
  Serious: Yes (Hospitalization)
  Sender: FDA-Public Use
  Company Number: AU-JNJFOC-20120400340

PATIENT
  Sex: Male
  Weight: 72.5 kg

DRUGS (5)
  1. REMICADE [Suspect]
     Indication: PSORIATIC ARTHROPATHY
     Route: 042
     Dates: start: 20120622
  2. MULTIVITAMIN [Concomitant]
  3. REMICADE [Suspect]
     Dosage: PT RECEIVED 12 INFUSIONS
     Route: 042
     Dates: start: 20100301, end: 20120127
  4. REMICADE [Suspect]
     Route: 042
     Dates: start: 20120622
  5. REMICADE [Suspect]
     Indication: PSORIASIS
     Dosage: PT RECEIVED 12 INFUSIONS
     Route: 042
     Dates: start: 20100301, end: 20120127

REACTIONS (1)
  - ABSCESS [None]
